FAERS Safety Report 20699432 (Version 1)
Quarter: 2022Q2

REPORT INFORMATION
  Report Type: Other
  Country: ES (occurrence: ES)
  Receive Date: 20220412
  Receipt Date: 20220412
  Transmission Date: 20220721
  Serious: Yes (Hospitalization, Other)
  Sender: FDA-Public Use
  Company Number: None

PATIENT

DRUGS (5)
  1. GABAPENTIN [Suspect]
     Active Substance: GABAPENTIN
     Indication: Spinal osteoarthritis
     Dosage: UNK, (300.0 MG CE)
     Route: 048
     Dates: start: 20200520, end: 20201029
  2. LATANOPROST [Concomitant]
     Active Substance: LATANOPROST
     Indication: Open angle glaucoma
     Dosage: UNK, (1.0 GTS C/24 H NOC)
     Route: 047
     Dates: start: 20191204
  3. LEVOTHYROXINE SODIUM [Concomitant]
     Active Substance: LEVOTHYROXINE SODIUM
     Indication: Hypothyroidism
     Dosage: UNK, (112.0 MCG A-DE)
     Route: 048
     Dates: start: 20140214
  4. IVABRADINA MYLAN [Concomitant]
     Indication: Myocardial ischaemia
     Dosage: UNK, (5.0 MG DECE)
     Route: 048
     Dates: start: 20180404
  5. ALOPURINOL CINFA [Concomitant]
     Indication: Gout
     Dosage: UNK, (100.0 MG DE)
     Route: 048
     Dates: start: 20130306

REACTIONS (4)
  - Myoclonic dystonia [Recovered/Resolved]
  - Neurological decompensation [Recovered/Resolved]
  - Depressed level of consciousness [Recovered/Resolved]
  - Somnolence [Recovered/Resolved]

NARRATIVE: CASE EVENT DATE: 20201028
